FAERS Safety Report 6999405-4 (Version None)
Quarter: 2010Q3

REPORT INFORMATION
  Report Type: 
  Country: None (occurrence: None)
  Receive Date: 20100920
  Receipt Date: 20100715
  Transmission Date: 20110219
  Serious: No
  Sender: FDA-Public Use
  Company Number: US-ASTRAZENECA-2010SE33042

PATIENT
  Age: 62 Year
  Sex: Male

DRUGS (4)
  1. SEROQUEL XR [Suspect]
     Indication: NERVOUSNESS
     Route: 048
     Dates: start: 20070101, end: 20100712
  2. OMEPRAZOLE [Concomitant]
     Route: 048
  3. HYDROXYZINE [Concomitant]
     Route: 048
  4. PAROXETINE HCL [Concomitant]
     Route: 048

REACTIONS (4)
  - CROHN'S DISEASE [None]
  - DRUG DOSE OMISSION [None]
  - NERVOUSNESS [None]
  - TREMOR [None]
